FAERS Safety Report 5599483-3 (Version None)
Quarter: 2008Q1

REPORT INFORMATION
  Report Type: 
  Country: None (occurrence: None)
  Receive Date: 20080123
  Receipt Date: 20080117
  Transmission Date: 20080703
  Serious: Yes (Life-Threatening, Hospitalization)
  Sender: FDA-Public Use
  Company Number: JP-BAYER-200810059BYL

PATIENT
  Age: 34 Year
  Sex: Female
  Weight: 73 kg

DRUGS (1)
  1. MAGNEVIST [Suspect]
     Indication: NEOPLASM
     Dosage: TOTAL DAILY DOSE: 15 ML
     Route: 042
     Dates: start: 20080115, end: 20080115

REACTIONS (9)
  - ABNORMAL SENSATION IN EYE [None]
  - ANAPHYLACTIC SHOCK [None]
  - COUGH [None]
  - GENERALISED ERYTHEMA [None]
  - LOSS OF CONSCIOUSNESS [None]
  - OXYGEN SATURATION DECREASED [None]
  - PALLOR [None]
  - PULSE ABSENT [None]
  - SWELLING FACE [None]
